FAERS Safety Report 4680149-9 (Version None)
Quarter: 2005Q2

REPORT INFORMATION
  Report Type: 
  Country: None (occurrence: None)
  Receive Date: 20050531
  Receipt Date: 20050517
  Transmission Date: 20051028
  Serious: Yes (Other)
  Sender: FDA-Public Use
  Company Number: HQWYE784619MAY05

PATIENT
  Age: 36 Year
  Sex: Male

DRUGS (4)
  1. EFFEXOR [Suspect]
     Indication: DEPRESSION
     Dosage: SEE IMAGE
  2. MIRTAZAPINE [Suspect]
     Dosage: ^UP TO 60 MG PER DAY^
  3. ZOPICLONE (ZOPICLONE) [Concomitant]
  4. CLORAZEPATE (CLORAZEPATE DIPOTASSIUM) [Concomitant]

REACTIONS (7)
  - DELUSION [None]
  - DRUG INTERACTION [None]
  - DRUG LEVEL DECREASED [None]
  - FATIGUE [None]
  - HYPERTENSION [None]
  - MYDRIASIS [None]
  - TACHYCARDIA [None]
